FAERS Safety Report 20057102 (Version 2)
Quarter: 2024Q2

REPORT INFORMATION
  Report Type: Report from Study
  Country: IT (occurrence: IT)
  Receive Date: 20211111
  Receipt Date: 20240405
  Transmission Date: 20240716
  Serious: Yes (Other)
  Sender: FDA-Public Use
  Company Number: None

PATIENT
  Age: 72 Year
  Sex: Female
  Weight: 60 kg

DRUGS (4)
  1. CAPECITABINE [Suspect]
     Active Substance: CAPECITABINE
     Indication: Pancreatic neoplasm
     Route: 048
     Dates: start: 20210303, end: 20210728
  2. CISPLATIN [Suspect]
     Active Substance: CISPLATIN
     Indication: Pancreatic neoplasm
     Dosage: 30 MILLIGRAM/SQ. METER
     Dates: start: 20210303, end: 20210728
  3. GEMCITABINE HYDROCHLORIDE [Suspect]
     Active Substance: GEMCITABINE HYDROCHLORIDE
     Indication: Pancreatic neoplasm
     Dates: start: 20210303, end: 20210811
  4. ABRAXANE [Suspect]
     Active Substance: PACLITAXEL
     Indication: Pancreatic neoplasm
     Dosage: INTRAVENOUS INFUSION, 150 MG/SQ. METER
     Dates: start: 20210303, end: 20210728

REACTIONS (2)
  - Off label use [Unknown]
  - Neurotoxicity [Recovered/Resolved]

NARRATIVE: CASE EVENT DATE: 20210317
